FAERS Safety Report 7718397-3 (Version None)
Quarter: 2011Q3

REPORT INFORMATION
  Report Type: 
  Country: None (occurrence: None)
  Receive Date: 20110830
  Receipt Date: 20110822
  Transmission Date: 20111222
  Serious: Yes (Other)
  Sender: FDA-Public Use
  Company Number: PHHY2011BR43277

PATIENT
  Sex: Male

DRUGS (2)
  1. EXELON [Suspect]
     Indication: MEMORY IMPAIRMENT
     Dosage: 4.6 MG, UNK
     Route: 062
  2. EXELON [Suspect]
     Dosage: 4.6 MG, UNK
     Route: 062
     Dates: start: 20110501

REACTIONS (4)
  - HEPATIC NEOPLASM [None]
  - GASTRIC CANCER [None]
  - SPLENIC NEOPLASM MALIGNANCY UNSPECIFIED [None]
  - MEMORY IMPAIRMENT [None]
